FAERS Safety Report 15834021 (Version 2)
Quarter: 2019Q3

REPORT INFORMATION
  Report Type: Report from Study
  Country: DE (occurrence: DE)
  Receive Date: 20190116
  Receipt Date: 20190910
  Transmission Date: 20191004
  Serious: Yes (Other)
  Sender: FDA-Public Use
  Company Number: DE-AMGEN-DEUNI2019006277

PATIENT
  Age: 72 Year
  Sex: Male
  Weight: 73 kg

DRUGS (30)
  1. PANITUMUMAB [Suspect]
     Active Substance: PANITUMUMAB
     Dosage: 440 MILLIGRAM
     Route: 042
     Dates: start: 20190325
  2. FOLINIC ACID [Suspect]
     Active Substance: LEUCOVORIN
     Indication: COLORECTAL CANCER METASTATIC
     Dosage: 720 MILLIGRAM
     Route: 065
     Dates: start: 20180604
  3. FLUOROURACIL. [Suspect]
     Active Substance: FLUOROURACIL
     Dosage: 4380 MILLIGRAM
     Route: 042
     Dates: start: 20180814
  4. PANITUMUMAB [Suspect]
     Active Substance: PANITUMUMAB
     Dosage: 430 MILLIGRAM
     Route: 042
     Dates: start: 20190603
  5. FOLINIC ACID [Suspect]
     Active Substance: LEUCOVORIN
     Dosage: 4480 MILLIGRAM
     Route: 065
     Dates: start: 20190218
  6. IRINOTECAN [Suspect]
     Active Substance: IRINOTECAN
     Dosage: 330 MILLIGRAM
     Route: 065
     Dates: start: 20190325
  7. PANITUMUMAB [Suspect]
     Active Substance: PANITUMUMAB
     Indication: COLORECTAL CANCER METASTATIC
     Dosage: 430 MILLIGRAM
     Route: 042
     Dates: start: 20180604
  8. PANITUMUMAB [Suspect]
     Active Substance: PANITUMUMAB
     Dosage: 460 MILLIGRAM
     Route: 042
     Dates: start: 20190121
  9. FOLINIC ACID [Suspect]
     Active Substance: LEUCOVORIN
     Dosage: 730 MILLIGRAM
     Route: 065
     Dates: start: 20180618
  10. FOLINIC ACID [Suspect]
     Active Substance: LEUCOVORIN
     Dosage: 710 MILLIGRAM
     Route: 065
     Dates: start: 20190617
  11. FLUOROURACIL. [Suspect]
     Active Substance: FLUOROURACIL
     Dosage: 4410 MILLIGRAM
     Route: 042
     Dates: start: 20180717
  12. FLUOROURACIL. [Suspect]
     Active Substance: FLUOROURACIL
     Dosage: 4360 MILLIGRAM
     Route: 042
     Dates: start: 20181119
  13. IRINOTECAN [Suspect]
     Active Substance: IRINOTECAN
     Dosage: 340 MILLIGRAM
     Route: 065
     Dates: start: 20190121
  14. PANITUMUMAB [Suspect]
     Active Substance: PANITUMUMAB
     Dosage: 450 MILLIGRAM
     Route: 042
     Dates: start: 20181219
  15. FOLINIC ACID [Suspect]
     Active Substance: LEUCOVORIN
     Dosage: 750 MILLIGRAM
     Route: 065
     Dates: start: 20190121
  16. FLUOROURACIL. [Suspect]
     Active Substance: FLUOROURACIL
     Dosage: 4380 MILLIGRAM
     Route: 042
     Dates: start: 20181105
  17. FLUOROURACIL. [Suspect]
     Active Substance: FLUOROURACIL
     Dosage: 4430 MILLIGRAM
     Route: 042
     Dates: start: 20181219
  18. IRINOTECAN [Suspect]
     Active Substance: IRINOTECAN
     Dosage: 320 MILLIGRAM
     Route: 065
     Dates: start: 20190617
  19. FOLINIC ACID [Suspect]
     Active Substance: LEUCOVORIN
     Dosage: 730 MILLIGRAM
     Route: 065
     Dates: start: 20190325
  20. FLUOROURACIL. [Suspect]
     Active Substance: FLUOROURACIL
     Dosage: 750 MILLIGRAM
     Route: 042
     Dates: start: 20190218
  21. FLUOROURACIL. [Suspect]
     Active Substance: FLUOROURACIL
     Dosage: 4380 MILLIGRAM
     Route: 042
     Dates: start: 20190325
  22. IRINOTECAN [Suspect]
     Active Substance: IRINOTECAN
     Indication: COLORECTAL CANCER METASTATIC
     Dosage: 330 MILLIGRAM
     Route: 065
     Dates: start: 20180604
  23. PANITUMUMAB [Suspect]
     Active Substance: PANITUMUMAB
     Dosage: 430 MILLIGRAM
     Route: 042
     Dates: start: 20181119
  24. FLUOROURACIL. [Suspect]
     Active Substance: FLUOROURACIL
     Indication: COLORECTAL CANCER METASTATIC
     Dosage: 4360 MILLIGRAM
     Route: 042
     Dates: start: 20180604
  25. FLUOROURACIL. [Suspect]
     Active Substance: FLUOROURACIL
     Dosage: 4280 MILLIGRAM
     Route: 042
     Dates: start: 20190617
  26. FLUOROURACIL. [Suspect]
     Active Substance: FLUOROURACIL
     Dosage: 4410 MILLIGRAM
     Route: 042
     Dates: start: 20180917
  27. PANITUMUMAB [Suspect]
     Active Substance: PANITUMUMAB
     Dosage: 440 MILLIGRAM
     Route: 042
     Dates: start: 20180717
  28. FOLINIC ACID [Suspect]
     Active Substance: LEUCOVORIN
     Dosage: 740 MILLIGRAM
     Route: 065
     Dates: start: 20181219
  29. FLUOROURACIL. [Suspect]
     Active Substance: FLUOROURACIL
     Dosage: 4480 MILLIGRAM
     Route: 042
     Dates: start: 20190121
  30. FLUOROURACIL. [Suspect]
     Active Substance: FLUOROURACIL
     Dosage: 4360 MILLIGRAM
     Route: 042
     Dates: start: 20190603

REACTIONS (1)
  - Neuropathy peripheral [Recovered/Resolved]

NARRATIVE: CASE EVENT DATE: 20180604
